FAERS Safety Report 17353559 (Version 2)
Quarter: 2020Q3

REPORT INFORMATION
  Report Type: Spontaneous
  Country: JP (occurrence: JP)
  Receive Date: 20200131
  Receipt Date: 20200803
  Transmission Date: 20201102
  Serious: Yes (Life-Threatening)
  Sender: FDA-Public Use
  Company Number: JP-ASTRAZENECA-2020SE14079

PATIENT
  Age: 66 Year
  Sex: Female
  Weight: 41 kg

DRUGS (10)
  1. WARFARIN [Concomitant]
     Active Substance: WARFARIN
     Indication: ENDOCARDITIS
     Dosage: 2 TO 3 MG DAILY
     Route: 048
     Dates: start: 20190115, end: 20190205
  2. CEFALEXIN [Concomitant]
     Active Substance: CEPHALEXIN
     Indication: ENDOCARDITIS
     Route: 048
     Dates: start: 20190201, end: 20190203
  3. VITADAN [Concomitant]
     Indication: STOMATITIS
     Route: 048
     Dates: start: 20190130, end: 20190204
  4. ENALAPRIL [Concomitant]
     Active Substance: ENALAPRIL
     Indication: ENDOCARDITIS
     Route: 048
     Dates: start: 20190110, end: 20190204
  5. DAIPHEN [Concomitant]
     Active Substance: SULFAMETHOXAZOLE\TRIMETHOPRIM
     Indication: ENDOCARDITIS
     Route: 048
     Dates: start: 20190204, end: 20190204
  6. NEXIUM [Suspect]
     Active Substance: ESOMEPRAZOLE MAGNESIUM
     Indication: ENDOCARDITIS
     Route: 048
     Dates: start: 20190129, end: 20190204
  7. AMLODIPINE [Concomitant]
     Active Substance: AMLODIPINE BESYLATE
     Indication: ENDOCARDITIS
     Route: 048
     Dates: start: 20190110, end: 20190204
  8. BROTIZOLAM OD [Concomitant]
     Active Substance: BROTIZOLAM
     Indication: ENDOCARDITIS
     Route: 048
     Dates: start: 20190120, end: 20190204
  9. DESPA [Concomitant]
     Indication: STOMATITIS
     Dosage: DOSE UNKNOWN
     Route: 049
     Dates: start: 20190129
  10. NICORANDIL [Concomitant]
     Active Substance: NICORANDIL
     Indication: ENDOCARDITIS
     Route: 048
     Dates: start: 20190110, end: 20190204

REACTIONS (2)
  - Erythema multiforme [Recovered/Resolved]
  - Off label use [Recovered/Resolved]

NARRATIVE: CASE EVENT DATE: 20190129
